FAERS Safety Report 18757116 (Version 2)
Quarter: 2021Q3

REPORT INFORMATION
  Report Type: Spontaneous
  Country: US (occurrence: US)
  Receive Date: 20210119
  Receipt Date: 20210810
  Transmission Date: 20211014
  Serious: Yes (Other)
  Sender: FDA-Public Use
  Company Number: US-ELI_LILLY_AND_COMPANY-US202101003409

PATIENT
  Sex: Male

DRUGS (6)
  1. BASAGLAR [Suspect]
     Active Substance: INSULIN GLARGINE
     Indication: PRODUCT USED FOR UNKNOWN INDICATION
     Dosage: UNK UNK, UNKNOWN
     Route: 065
     Dates: start: 2018
  2. INSULIN LISPRO LILLY [Suspect]
     Active Substance: INSULIN LISPRO
     Indication: PRODUCT USED FOR UNKNOWN INDICATION
     Dosage: UNK, UNKNOWN
     Route: 065
     Dates: start: 202010
  3. BASAGLAR [Suspect]
     Active Substance: INSULIN GLARGINE
     Dosage: UNK UNK, UNKNOWN
     Route: 065
  4. BASAGLAR [Suspect]
     Active Substance: INSULIN GLARGINE
     Dosage: UNK UNK, UNKNOWN
     Route: 065
     Dates: start: 202009
  5. INSULIN LISPRO LILLY [Suspect]
     Active Substance: INSULIN LISPRO
     Dosage: UNK, UNKNOWN
     Route: 065
  6. AVASTIN [ATORVASTATIN CALCIUM] [Concomitant]
     Active Substance: ATORVASTATIN CALCIUM
     Indication: PRODUCT USED FOR UNKNOWN INDICATION

REACTIONS (4)
  - Diabetic retinopathy [Not Recovered/Not Resolved]
  - Retinal detachment [Not Recovered/Not Resolved]
  - Eye injury [Not Recovered/Not Resolved]
  - Visual impairment [Recovered/Resolved]
